FAERS Safety Report 13414676 (Version 5)
Quarter: 2017Q3

REPORT INFORMATION
  Report Type: Report from Study
  Country: CA (occurrence: CA)
  Receive Date: 20170406
  Receipt Date: 20170919
  Transmission Date: 20171127
  Serious: Yes (Other)
  Sender: FDA-Public Use
  Company Number: CA-GLAXOSMITHKLINE-CA2017GSK002256

PATIENT
  Sex: Male

DRUGS (6)
  1. MEPOLIZUMAB [Suspect]
     Active Substance: MEPOLIZUMAB
     Dosage: UNK, 100 MG 1 MONTHS
     Route: 042
  2. MEPOLIZUMAB [Suspect]
     Active Substance: MEPOLIZUMAB
     Indication: ASTHMA
     Dosage: 100 MG, Z, 100 MG 1 MONTHS
     Route: 042
     Dates: start: 20161014
  3. MEPOLIZUMAB [Suspect]
     Active Substance: MEPOLIZUMAB
     Dosage: 100 MG, Z
     Dates: start: 20170817
  4. MEPOLIZUMAB [Suspect]
     Active Substance: MEPOLIZUMAB
     Dosage: UNK, 100 MG 1 MONTHS
     Route: 042
  5. MEPOLIZUMAB [Suspect]
     Active Substance: MEPOLIZUMAB
     Dosage: UNK, 100 MG 1 MONTHS
     Route: 042
  6. MEPOLIZUMAB [Suspect]
     Active Substance: MEPOLIZUMAB
     Dosage: 100 MG, Z
     Dates: start: 20170914

REACTIONS (9)
  - Blood pressure increased [Unknown]
  - Nasopharyngitis [Recovering/Resolving]
  - Rhinorrhoea [Recovered/Resolved]
  - Wheezing [Unknown]
  - Nephrolithiasis [Unknown]
  - Throat irritation [Recovered/Resolved]
  - Renal disorder [Unknown]
  - Renal colic [Unknown]
  - Increased upper airway secretion [Unknown]
